FAERS Safety Report 10548931 (Version 4)
Quarter: 2014Q4

REPORT INFORMATION
  Report Type: Spontaneous
  Country: JP (occurrence: JP)
  Receive Date: 20141028
  Receipt Date: 20141120
  Transmission Date: 20150529
  Serious: Yes (Hospitalization)
  Sender: FDA-Public Use
  Company Number: JP-JNJFOC-20141017012

PATIENT
  Age: 59 Year
  Sex: Male
  Weight: 56 kg

DRUGS (10)
  1. CAMOSTAT MESILATE [Concomitant]
     Active Substance: CAMOSTAT MESYLATE
     Indication: PANCREATITIS CHRONIC
     Dates: start: 20001121
  2. AMOBAN [Concomitant]
     Active Substance: ZOPICLONE
     Indication: INSOMNIA
     Route: 048
  3. CEVOZYL [Concomitant]
     Indication: HYPERTENSION
     Route: 048
     Dates: start: 20140930, end: 20141015
  4. NESINA [Concomitant]
     Active Substance: ALOGLIPTIN BENZOATE
     Route: 048
     Dates: end: 20140929
  5. CANAGLU [Suspect]
     Active Substance: CANAGLIFLOZIN
     Indication: DIABETES MELLITUS
     Route: 048
     Dates: start: 20140930, end: 20141013
  6. AZILVA (AZILSARTAN) [Concomitant]
     Indication: HYPERTENSION
     Route: 048
     Dates: end: 20141015
  7. AMLODIPINE BESILATE [Concomitant]
     Active Substance: AMLODIPINE BESYLATE
     Indication: HYPERTENSION
     Route: 048
     Dates: end: 20141015
  8. TRAZENTA [Suspect]
     Active Substance: LINAGLIPTIN
     Indication: DIABETES MELLITUS
     Route: 048
     Dates: start: 20140930, end: 20141015
  9. AMARYL [Concomitant]
     Active Substance: GLIMEPIRIDE
     Route: 048
     Dates: end: 20140929
  10. VOGLIBOSE [Concomitant]
     Active Substance: VOGLIBOSE
     Route: 048
     Dates: end: 20140929

REACTIONS (2)
  - Gastrooesophageal reflux disease [Recovered/Resolved]
  - Diabetic ketoacidosis [Recovered/Resolved]

NARRATIVE: CASE EVENT DATE: 20141018
